FAERS Safety Report 16468670 (Version 11)
Quarter: 2020Q2

REPORT INFORMATION
  Report Type: Spontaneous
  Country: US (occurrence: US)
  Receive Date: 20190624
  Receipt Date: 20200413
  Transmission Date: 20200713
  Serious: No
  Sender: FDA-Public Use
  Company Number: US-PFIZER INC-2019269110

PATIENT
  Age: 68 Year
  Sex: Female
  Weight: 35 kg

DRUGS (14)
  1. VENLAFAXINE [Concomitant]
     Active Substance: VENLAFAXINE HYDROCHLORIDE
     Indication: DEPRESSION
     Dosage: 75 MG, 3X/DAY
  2. CHANTIX [Suspect]
     Active Substance: VARENICLINE TARTRATE
     Dosage: 0.5 MG (CUTTING 1 MG IN HALF), UNK
  3. VALIUM [Concomitant]
     Active Substance: DIAZEPAM
     Indication: ANXIETY
     Dosage: 5 MG, 2X/DAY (1 TABLET BY MOUTH TWICE DAILY)
     Route: 048
  4. TRAZODONE [Concomitant]
     Active Substance: TRAZODONE HYDROCHLORIDE
     Indication: SLEEP DISORDER
     Dosage: 300 MG, 1X/DAY (150MG 2 TABLETS BY MOUTH EVERY NIGHT AT BEDTIME)
     Route: 048
  5. TRAZODONE [Concomitant]
     Active Substance: TRAZODONE HYDROCHLORIDE
     Dosage: 37.5 MG, 1X/DAY (TAKES HALF OF 1 PILL AT NIGHT 75MG AT BEDTIME)
  6. VITAMIN B12 [HYDROXOCOBALAMIN] [Concomitant]
     Active Substance: HYDROXOCOBALAMIN
     Indication: ASTHENIA
     Dosage: 1000 UG, DAILY (1000MCG 1 TIME RELEASED TABLET BY MOUTH DAILY)
     Route: 048
  7. CHANTIX [Suspect]
     Active Substance: VARENICLINE TARTRATE
     Indication: SMOKING CESSATION THERAPY
     Dosage: 1 MG, 2X/DAY (TWICE DAILY MORNING AND NIGHT)
     Route: 048
  8. PRESERVISION [Concomitant]
     Active Substance: MINERALS\VITAMINS
     Indication: MACULAR DEGENERATION
     Dosage: UNK
  9. ALENDRONATE [Concomitant]
     Active Substance: ALENDRONATE SODIUM
     Dosage: 70 MG, WEEKLY (1 TABLET BY MOUTH WEEKLY)
     Route: 048
  10. MAG OXIDE [Concomitant]
     Active Substance: MAGNESIUM OXIDE
     Indication: BLOOD MAGNESIUM DECREASED
     Dosage: 400 MG, 2X/DAY
     Route: 048
  11. VITAMIN D3 [Concomitant]
     Active Substance: CHOLECALCIFEROL
     Dosage: UNK, DAILY (1200MG PLUS 25MCG OF VITAMIN D3 1 TABLET DAILY)
  12. GABAPENTIN. [Concomitant]
     Active Substance: GABAPENTIN
     Indication: NERVE INJURY
     Dosage: 400 MG, 3X/DAY
     Route: 048
  13. REFRESH [CARMELLOSE] [Concomitant]
     Indication: DRY EYE
     Dosage: 1 GTT, 3X/DAY (1 DROP TO LEFT EYE 3 TIMES A DAY)
  14. CALCIUM [Concomitant]
     Active Substance: CALCIUM
     Indication: BONE DENSITY ABNORMAL
     Dosage: UNK, DAILY (1200MG PLUS 25MCG OF VITAMIN D3 1 TABLET DAILY)

REACTIONS (11)
  - Malaise [Unknown]
  - Malaise [Not Recovered/Not Resolved]
  - Sputum discoloured [Unknown]
  - Oral pain [Unknown]
  - Pain [Unknown]
  - Weight decreased [Unknown]
  - Fall [Not Recovered/Not Resolved]
  - General physical health deterioration [Unknown]
  - Product dispensing error [Unknown]
  - Speech disorder [Unknown]
  - Pyrexia [Unknown]

NARRATIVE: CASE EVENT DATE: 20200325
